FAERS Safety Report 15577071 (Version 3)
Quarter: 2018Q4

REPORT INFORMATION
  Report Type: Spontaneous
  Country: US (occurrence: US)
  Receive Date: 20181101
  Receipt Date: 20181225
  Transmission Date: 20190205
  Serious: Yes (Other)
  Sender: FDA-Public Use
  Company Number: US-ASTRAZENECA-2018SF42086

PATIENT
  Age: 29662 Day
  Sex: Female
  Weight: 40.8 kg

DRUGS (2)
  1. SYMBICORT [Suspect]
     Active Substance: BUDESONIDE\FORMOTEROL FUMARATE DIHYDRATE
     Indication: CHRONIC OBSTRUCTIVE PULMONARY DISEASE
     Dosage: 160/4.5 MCG 2 PUFFS TWICE PER DAY
     Route: 055
     Dates: start: 2016
  2. MUCINEX [Concomitant]
     Active Substance: GUAIFENESIN
     Indication: DYSPHONIA
     Route: 065

REACTIONS (8)
  - Aphasia [Unknown]
  - Weight decreased [Unknown]
  - Dyspnoea [Unknown]
  - Complication associated with device [Unknown]
  - Aphonia [Unknown]
  - Hypophagia [Unknown]
  - Device malfunction [Unknown]
  - Intentional product misuse [Unknown]

NARRATIVE: CASE EVENT DATE: 20181008
